FAERS Safety Report 15070022 (Version 2)
Quarter: 2019Q1

REPORT INFORMATION
  Report Type: Report from Study
  Country: CA (occurrence: CA)
  Receive Date: 20180626
  Receipt Date: 20190327
  Transmission Date: 20190417
  Serious: Yes (Other)
  Sender: FDA-Public Use
  Company Number: PHHY2015CA032884

PATIENT
  Sex: Male

DRUGS (1)
  1. GLEEVEC [Suspect]
     Active Substance: IMATINIB MESYLATE
     Indication: CHRONIC MYELOID LEUKAEMIA
     Dosage: 1 DF, QD
     Route: 048
     Dates: start: 20140703

REACTIONS (20)
  - Headache [Unknown]
  - Haemorrhage [Unknown]
  - Skin papilloma [Unknown]
  - Rash generalised [Unknown]
  - Hypertension [Unknown]
  - Vomiting [Recovered/Resolved]
  - Abdominal pain [Unknown]
  - Cyst [Recovering/Resolving]
  - Diarrhoea [Unknown]
  - Weight increased [Unknown]
  - Second primary malignancy [Unknown]
  - Scab [Unknown]
  - Ulcer [Unknown]
  - Blood count abnormal [Unknown]
  - Diarrhoea [Recovered/Resolved]
  - Depression [Unknown]
  - Neoplasm malignant [Unknown]
  - Acne [Unknown]
  - Infection [Recovered/Resolved]
  - Malaise [Recovered/Resolved]
